FAERS Safety Report 7702426-7 (Version None)
Quarter: 2011Q3

REPORT INFORMATION
  Report Type: 
  Country: None (occurrence: None)
  Receive Date: 20110822
  Receipt Date: 20110808
  Transmission Date: 20111222
  Serious: Yes (Hospitalization)
  Sender: FDA-Public Use
  Company Number: US-ALLERGAN-1015452US

PATIENT
  Age: 44 Year
  Sex: Female

DRUGS (18)
  1. BOTULINUM TOXIN TYPE A [Suspect]
     Indication: MUSCLE SPASTICITY
  2. FLEXERIL [Concomitant]
     Indication: PRODUCT USED FOR UNKNOWN INDICATION
     Dosage: 10 MG, PRN
  3. CELEBREX [Concomitant]
  4. BOTULINUM TOXIN TYPE A [Suspect]
     Indication: TORTICOLLIS
     Dosage: 170 UNITS, SINGLE
     Route: 030
     Dates: start: 20080429, end: 20080429
  5. ULTRACET [Concomitant]
     Indication: PRODUCT USED FOR UNKNOWN INDICATION
     Dosage: UNK
  6. FISH OIL [Concomitant]
     Indication: PRODUCT USED FOR UNKNOWN INDICATION
  7. LIDOPATCHES [Concomitant]
  8. VITAMIN E [Concomitant]
     Indication: PRODUCT USED FOR UNKNOWN INDICATION
  9. PREVACID [Concomitant]
  10. BOTULINUM TOXIN TYPE A [Suspect]
     Indication: PAIN IN EXTREMITY
  11. LORAZEPAM [Concomitant]
     Indication: PRODUCT USED FOR UNKNOWN INDICATION
     Dosage: 0.5 MG, PRN
  12. CALCIUM CARBONATE [Concomitant]
     Indication: PRODUCT USED FOR UNKNOWN INDICATION
     Dosage: UNK
  13. NEURONTIN [Concomitant]
     Indication: PRODUCT USED FOR UNKNOWN INDICATION
     Dosage: 300 MG, QHS
  14. ULTRAM [Concomitant]
     Indication: PRODUCT USED FOR UNKNOWN INDICATION
     Dosage: UNK
  15. MULTI-VITAMIN [Concomitant]
     Indication: PRODUCT USED FOR UNKNOWN INDICATION
     Dosage: UNK
  16. BOTULINUM TOXIN TYPE A [Suspect]
     Indication: MUSCLE TIGHTNESS
  17. PERCOCET [Concomitant]
  18. MOBIC [Concomitant]

REACTIONS (10)
  - FEEDING DISORDER [None]
  - FATIGUE [None]
  - GAIT DISTURBANCE [None]
  - INJECTION SITE HYPERSENSITIVITY [None]
  - DYSPNOEA [None]
  - INJECTION SITE PAIN [None]
  - WEIGHT DECREASED [None]
  - INJECTION SITE REACTION [None]
  - MUSCULAR WEAKNESS [None]
  - RASH GENERALISED [None]
